FAERS Safety Report 5305180-1 (Version None)
Quarter: 2007Q2

REPORT INFORMATION
  Report Type: 
  Country: None (occurrence: None)
  Receive Date: 20070416
  Receipt Date: 20070410
  Transmission Date: 20071010
  Serious: Yes (Other)
  Sender: FDA-Public Use
  Company Number: 012409

PATIENT
  Sex: Female

DRUGS (4)
  1. MEDROXYPROGESTERONE [Suspect]
     Dosage: UNK, UNK, ORAL
     Route: 048
     Dates: start: 19910101, end: 20010901
  2. PREMARIN [Suspect]
     Dosage: UNK, UNK, ORAL
     Route: 048
     Dates: start: 19910101, end: 20010901
  3. PREMPRO [Suspect]
     Dosage: UNK, UNK, ORAL
     Route: 048
     Dates: start: 19910101, end: 20010901
  4. PROVERA [Suspect]
     Dosage: UNK, UNK, ORAL
     Route: 048
     Dates: start: 19910101, end: 20010901

REACTIONS (1)
  - BREAST CANCER [None]
